FAERS Safety Report 8803357 (Version 1)
Quarter: 2012Q4

REPORT INFORMATION
  Report Type: 
  Country: US (occurrence: US)
  Receive Date: 20120924
  Receipt Date: 20120924
  Transmission Date: 20130627
  Serious: No
  Sender: FDA-Public Use
  Company Number: US-ASTRAZENECA-2012SE64861

PATIENT
  Age: 64 Year
  Sex: Male
  Weight: 77.1 kg

DRUGS (3)
  1. NEXIUM [Suspect]
     Indication: OESOPHAGEAL DISORDER
     Route: 048
     Dates: start: 2007
  2. ANTIBIOTIC [Interacting]
     Route: 065
     Dates: start: 20120822
  3. ASPIRIN [Concomitant]

REACTIONS (6)
  - Drug interaction [Recovering/Resolving]
  - Dyspnoea [Recovering/Resolving]
  - Anxiety [Recovering/Resolving]
  - Dizziness [Recovering/Resolving]
  - Nausea [Recovering/Resolving]
  - Off label use [Unknown]
